FAERS Safety Report 24576761 (Version 4)
Quarter: 2024Q4

REPORT INFORMATION
  Report Type: Report from Study
  Country: US (occurrence: US)
  Receive Date: 20241104
  Receipt Date: 20241129
  Transmission Date: 20250115
  Serious: Yes (Other)
  Sender: ORGANON
  Company Number: US-ORGANON-O2410USA001389

PATIENT
  Sex: Female
  Weight: 70.295 kg

DRUGS (2)
  1. IMPLANON [Suspect]
     Active Substance: ETONOGESTREL
     Indication: Contraception
     Dosage: 1 IMPLANT, 68 MG IN LEFT UPPER ARM (PATIENT^S NON DOMINANT ARM)
     Route: 059
     Dates: start: 20240813, end: 20241023
  2. NEXPLANON [Concomitant]
     Active Substance: ETONOGESTREL
     Dosage: 1 IMPLANT (FOR 3 YEARS)
     Route: 059
     Dates: start: 20210813, end: 20240813

REACTIONS (7)
  - Device expulsion [Recovered/Resolved]
  - Implant site infection [Not Recovered/Not Resolved]
  - Impaired healing [Not Recovered/Not Resolved]
  - Cellulitis [Unknown]
  - Device placement issue [Recovered/Resolved]
  - Complication of device removal [Recovered/Resolved]
  - Wrong technique in product usage process [Unknown]

NARRATIVE: CASE EVENT DATE: 20240101
